FAERS Safety Report 19678833 (Version 1)
Quarter: 2021Q3

REPORT INFORMATION
  Report Type: Spontaneous
  Country: US (occurrence: US)
  Receive Date: 20210809
  Receipt Date: 20210809
  Transmission Date: 20211014
  Serious: No
  Sender: FDA-Public Use
  Company Number: None

PATIENT

DRUGS (1)
  1. EQUATE NICOTINE [Suspect]
     Active Substance: NICOTINE
     Dosage: ?          QUANTITY:14 PATCH(ES);?
     Route: 062

REACTIONS (2)
  - Contusion [None]
  - Pruritus [None]

NARRATIVE: CASE EVENT DATE: 20210804
